FAERS Safety Report 8020796-X (Version None)
Quarter: 2012Q1

REPORT INFORMATION
  Report Type: 
  Country: None (occurrence: None)
  Receive Date: 20120104
  Receipt Date: 20111227
  Transmission Date: 20120608
  Serious: No
  Sender: FDA-Public Use
  Company Number: US-BIOGENIDEC-2011BI048725

PATIENT
  Sex: Female

DRUGS (3)
  1. TYSABRI [Suspect]
     Route: 042
     Dates: start: 20100713, end: 20101007
  2. TYSABRI [Suspect]
     Route: 042
     Dates: start: 20061102, end: 20070605
  3. TYSABRI [Suspect]
     Indication: MULTIPLE SCLEROSIS
     Route: 042
     Dates: start: 20110922

REACTIONS (2)
  - COORDINATION ABNORMAL [None]
  - HEART RATE INCREASED [None]
